FAERS Safety Report 13269813 (Version 2)
Quarter: 2017Q2

REPORT INFORMATION
  Report Type: Spontaneous
  Country: DE (occurrence: DE)
  Receive Date: 20170224
  Receipt Date: 20170515
  Transmission Date: 20170830
  Serious: Yes (Hospitalization)
  Sender: FDA-Public Use
  Company Number: DE-DSJP-DSE-2017-105713

PATIENT

DRUGS (3)
  1. NEXIUM [Concomitant]
     Active Substance: ESOMEPRAZOLE MAGNESIUM
     Indication: PRODUCT USED FOR UNKNOWN INDICATION
     Dosage: 20 MG, QD
  2. LIXIANA [Suspect]
     Active Substance: EDOXABAN TOSYLATE
     Indication: ATRIAL FIBRILLATION
     Dosage: 60 MG, QD
     Route: 048
     Dates: start: 20160606
  3. LIXIANA [Suspect]
     Active Substance: EDOXABAN TOSYLATE
     Indication: CEREBRAL ISCHAEMIA

REACTIONS (5)
  - Subdural haematoma [Recovering/Resolving]
  - Dizziness [Recovering/Resolving]
  - Pallor [Recovering/Resolving]
  - Iron deficiency anaemia [Recovering/Resolving]
  - Faeces discoloured [Recovering/Resolving]

NARRATIVE: CASE EVENT DATE: 201612
